FAERS Safety Report 17855406 (Version 1)
Quarter: 2020Q2

REPORT INFORMATION
  Report Type: Spontaneous
  Country: CA (occurrence: CA)
  Receive Date: 20200603
  Receipt Date: 20200603
  Transmission Date: 20200714
  Serious: Yes (Other)
  Sender: FDA-Public Use
  Company Number: CA-TEVA-2020-CA-1243066

PATIENT
  Age: 49 Year
  Sex: Male

DRUGS (4)
  1. CIPROFLOXACIN. [Suspect]
     Active Substance: CIPROFLOXACIN
     Indication: URINARY TRACT INFECTION
     Dosage: 500 MILLIGRAM DAILY;
     Route: 048
  2. ASPIRIN. [Concomitant]
     Active Substance: ASPIRIN
  3. BRILINTA [Concomitant]
     Active Substance: TICAGRELOR
  4. CRESTOR [Concomitant]
     Active Substance: ROSUVASTATIN CALCIUM

REACTIONS (7)
  - Lethargy [Unknown]
  - Fatigue [Unknown]
  - Paraesthesia [Unknown]
  - Chest pain [Unknown]
  - Dizziness [Unknown]
  - Impaired quality of life [Unknown]
  - Neuralgia [Unknown]
